FAERS Safety Report 6288008-5 (Version None)
Quarter: 2009Q3

REPORT INFORMATION
  Report Type: 
  Country: None (occurrence: None)
  Receive Date: 20090729
  Receipt Date: 20090720
  Transmission Date: 20100115
  Serious: Yes (Hospitalization)
  Sender: FDA-Public Use
  Company Number: US-ROCHE-639533

PATIENT
  Sex: Male
  Weight: 55.8 kg

DRUGS (3)
  1. CAPECITABINE [Suspect]
     Dosage: ON HOLD
     Route: 048
     Dates: start: 20090301
  2. CAPECITABINE [Suspect]
     Route: 048
  3. IRINOTECAN HCL [Concomitant]
     Dosage: WEEKLYX4 WK
     Route: 042
     Dates: start: 20090403

REACTIONS (3)
  - BLISTER [None]
  - DIARRHOEA [None]
  - SKIN EXFOLIATION [None]
